FAERS Safety Report 6647812-1 (Version None)
Quarter: 2010Q1

REPORT INFORMATION
  Report Type: 
  Country: None (occurrence: None)
  Receive Date: 20100318
  Receipt Date: 20100309
  Transmission Date: 20100710
  Serious: Yes (Other)
  Sender: FDA-Public Use
  Company Number: 2010SP015152

PATIENT
  Age: 2 Year
  Sex: Male

DRUGS (3)
  1. MIRTAZAPINE [Suspect]
     Indication: ACCIDENTAL EXPOSURE
     Dosage: 60 MG;QD;PO
     Route: 048
  2. FLUVOXAMINE MALEATE [Suspect]
     Indication: ACCIDENTAL EXPOSURE
     Dosage: 200 MG;QD;PO
     Route: 048
  3. LENDORM [Suspect]
     Indication: ACCIDENTAL EXPOSURE
     Dosage: 1.0 MG;QD;PO
     Route: 048

REACTIONS (5)
  - ACCIDENTAL DRUG INTAKE BY CHILD [None]
  - ACIDOSIS [None]
  - DEPRESSED LEVEL OF CONSCIOUSNESS [None]
  - DIZZINESS [None]
  - RESTLESSNESS [None]
